FAERS Safety Report 4429581-9 (Version None)
Quarter: 2004Q3

REPORT INFORMATION
  Report Type: 
  Country: None (occurrence: None)
  Receive Date: 20040816
  Receipt Date: 20040805
  Transmission Date: 20050211
  Serious: Yes (Other)
  Sender: FDA-Public Use
  Company Number: K200401171

PATIENT
  Age: 77 Year
  Sex: Female

DRUGS (5)
  1. ALTACE [Suspect]
     Indication: HYPERTENSION
     Dosage: 10 MG, QD, ORAL
     Route: 048
     Dates: start: 20040625, end: 20040710
  2. TERBUTALINE SULFATE [Concomitant]
  3. BUDESONIDE (BUDESONIDE) [Concomitant]
  4. BENDROFLUAZIDE [Concomitant]
  5. ATORVASTATIN CALCIUM [Concomitant]

REACTIONS (2)
  - ASTHMA [None]
  - BURNING SENSATION [None]
